FAERS Safety Report 17453331 (Version 1)
Quarter: 2020Q1

REPORT INFORMATION
  Report Type: Spontaneous
  Country: US (occurrence: US)
  Receive Date: 20200224
  Receipt Date: 20200224
  Transmission Date: 20200409
  Serious: No
  Sender: FDA-Public Use
  Company Number: US-PERRIGO-19US006873

PATIENT
  Age: 85 Year
  Sex: Female
  Weight: 75.28 kg

DRUGS (5)
  1. LOPERAMIDE HYDROCHLORIDE. [Suspect]
     Active Substance: LOPERAMIDE HYDROCHLORIDE
     Dosage: 2 MG, SINGLE
     Route: 048
     Dates: start: 20190531, end: 20190531
  2. METOPROLOL. [Concomitant]
     Active Substance: METOPROLOL
     Indication: HYPERTENSION
     Dosage: UNK
     Route: 065
  3. LOPERAMIDE HYDROCHLORIDE. [Suspect]
     Active Substance: LOPERAMIDE HYDROCHLORIDE
     Indication: DIARRHOEA
     Dosage: 2 MG, 1 TO 3 TIMES DAILY, PRN
     Route: 048
     Dates: start: 201904, end: 201904
  4. ELIQUIS [Concomitant]
     Active Substance: APIXABAN
     Indication: CARDIAC ASSISTANCE DEVICE USER
     Dosage: UNK
     Route: 065
  5. ANTIBIOTICS [Concomitant]
     Active Substance: UNSPECIFIED INGREDIENT
     Indication: DIVERTICULITIS
     Dosage: UNK
     Route: 065
     Dates: start: 20190521

REACTIONS (3)
  - Product administration error [Recovered/Resolved]
  - Faeces discoloured [Not Recovered/Not Resolved]
  - Intentional product use issue [Recovered/Resolved]

NARRATIVE: CASE EVENT DATE: 201904
